FAERS Safety Report 13621911 (Version 1)
Quarter: 2017Q2

REPORT INFORMATION
  Report Type: Spontaneous
  Country: US (occurrence: US)
  Receive Date: 20170607
  Receipt Date: 20170607
  Transmission Date: 20170830
  Serious: No
  Sender: FDA-Public Use
  Company Number: US-ROCHE-1843664

PATIENT
  Sex: Male

DRUGS (4)
  1. METOPROLOL. [Concomitant]
     Active Substance: METOPROLOL
  2. XELODA [Suspect]
     Active Substance: CAPECITABINE
     Dosage: ON FOR ONE WEEK OFF FOR ONE
     Route: 065
  3. XELODA [Suspect]
     Active Substance: CAPECITABINE
     Indication: PRODUCT USED FOR UNKNOWN INDICATION
     Dosage: ON FOR TWO WEEKS OFF FOR ONE
     Route: 065
     Dates: start: 201607
  4. SIMVASTATIN. [Concomitant]
     Active Substance: SIMVASTATIN

REACTIONS (2)
  - Nausea [Recovering/Resolving]
  - Palmar-plantar erythrodysaesthesia syndrome [Not Recovered/Not Resolved]
